FAERS Safety Report 5993770-2 (Version None)
Quarter: 2008Q4

REPORT INFORMATION
  Report Type: 
  Country: None (occurrence: None)
  Receive Date: 20081212
  Receipt Date: 20081209
  Transmission Date: 20090506
  Serious: Yes (Other)
  Sender: FDA-Public Use
  Company Number: US-ELI_LILLY_AND_COMPANY-US200812002663

PATIENT
  Sex: Female

DRUGS (9)
  1. ALIMTA [Suspect]
     Indication: LUNG NEOPLASM MALIGNANT
     Dates: start: 20071101
  2. POTASSIUM CHLORIDE [Concomitant]
  3. TEMAZEPAM [Concomitant]
  4. REGLAN [Concomitant]
  5. OXYCODONE HCL [Concomitant]
  6. COUMADIN [Concomitant]
  7. QUININE SULFATE [Concomitant]
  8. VITAMIN B-12 [Concomitant]
  9. FOLIC ACID [Concomitant]

REACTIONS (2)
  - LACRIMATION INCREASED [None]
  - VISION BLURRED [None]
